FAERS Safety Report 13959720 (Version 1)
Quarter: 2017Q3

REPORT INFORMATION
  Report Type: Report from Study
  Country: AU (occurrence: AU)
  Receive Date: 20170911
  Receipt Date: 20170911
  Transmission Date: 20171128
  Serious: Yes (Other)
  Sender: FDA-Public Use
  Company Number: AU-REGENERON PHARMACEUTICALS, INC.-2017-21646

PATIENT

DRUGS (2)
  1. EYLEA [Suspect]
     Active Substance: AFLIBERCEPT
     Indication: NEOVASCULAR AGE-RELATED MACULAR DEGENERATION
     Dosage: RIGHT EYE EVERY 8 WEEKS
     Route: 031
     Dates: start: 201605
  2. EYLEA [Suspect]
     Active Substance: AFLIBERCEPT
     Dosage: LEFT EYE EVERY FIVE WEEKS
     Route: 031
     Dates: start: 201605

REACTIONS (2)
  - Retinal oedema [Not Recovered/Not Resolved]
  - Crohn^s disease [Not Recovered/Not Resolved]
